FAERS Safety Report 8286763-6 (Version None)
Quarter: 2012Q2

REPORT INFORMATION
  Report Type: 
  Country: None (occurrence: None)
  Receive Date: 20120411
  Receipt Date: 20120329
  Transmission Date: 20120825
  Serious: Yes (Other)
  Sender: FDA-Public Use
  Company Number: AUR-APL-2012-01696

PATIENT
  Age: 64 Year
  Sex: Female
  Weight: 77 kg

DRUGS (13)
  1. NEURONTIN [Suspect]
     Indication: SENSORY DISTURBANCE
     Dosage: 20 MG (20 MG, 1 IN 1 D),ORAL
     Route: 048
     Dates: start: 20120301, end: 20120301
  2. NEURONTIN [Suspect]
     Indication: PERIPHERAL SENSORY NEUROPATHY
     Dosage: 20 MG (20 MG, 1 IN 1 D),ORAL
     Route: 048
     Dates: start: 20120301, end: 20120301
  3. RAMIPRIL [Suspect]
     Indication: PRODUCT USED FOR UNKNOWN INDICATION
  4. FUROSEMIDE(FUROSEMIDE) [Concomitant]
  5. KLONOPIN [Suspect]
     Indication: DISCOMFORT
  6. KLONOPIN [Suspect]
     Indication: ABDOMINAL DISTENSION
  7. KLONOPIN [Suspect]
     Indication: FEELING ABNORMAL
  8. KLONOPIN [Suspect]
     Indication: BREAST PAIN
  9. KLONOPIN [Suspect]
     Indication: SKIN SENSITISATION
  10. KLONOPIN [Suspect]
     Indication: ADVERSE REACTION
  11. HUMALOG [Concomitant]
  12. LIPITOR [Suspect]
     Indication: BLOOD CHOLESTEROL INCREASED
     Dosage: 20 MG (20 MG, 1 IN 1 D),ORAL
     Route: 048
     Dates: end: 20120301
  13. PLAVIX [Concomitant]

REACTIONS (8)
  - NERVOUS SYSTEM DISORDER [None]
  - RENAL DISORDER [None]
  - DISCOMFORT [None]
  - SOMNOLENCE [None]
  - ABDOMINAL DISTENSION [None]
  - HYPERAESTHESIA [None]
  - BREAST DISORDER [None]
  - FLUID RETENTION [None]
